FAERS Safety Report 4302605-5 (Version None)
Quarter: 2004Q1

REPORT INFORMATION
  Report Type: 
  Country: None (occurrence: None)
  Receive Date: 20040220
  Receipt Date: 20040206
  Transmission Date: 20041129
  Serious: Yes (Congenital Anomaly)
  Sender: FDA-Public Use
  Company Number: 025762

PATIENT
  Age: 22 Year
  Sex: Female
  Weight: 65.8 kg

DRUGS (5)
  1. PULMOZYME [Suspect]
     Indication: CYSTIC FIBROSIS
     Dosage: 2.5 MG, QD, RESPIRATORY
     Route: 055
     Dates: start: 19940202, end: 19950922
  2. THEO-DUR [Concomitant]
  3. CEPHALEXIN [Concomitant]
  4. ZANTAC [Concomitant]
  5. TOBRAMYCIN [Concomitant]

REACTIONS (2)
  - HORSESHOE KIDNEY [None]
  - MATERNAL DRUGS AFFECTING FOETUS [None]
